FAERS Safety Report 5725413-7 (Version None)
Quarter: 2008Q2

REPORT INFORMATION
  Report Type: 
  Country: None (occurrence: None)
  Receive Date: 20080501
  Receipt Date: 20080422
  Transmission Date: 20081010
  Serious: Yes (Other)
  Sender: FDA-Public Use
  Company Number: HR-PFIZER INC-2008029106

PATIENT
  Sex: Female
  Weight: 89 kg

DRUGS (3)
  1. CHAMPIX [Suspect]
     Indication: SMOKING CESSATION THERAPY
     Route: 048
     Dates: start: 20080211, end: 20080311
  2. IRUMED [Concomitant]
  3. ISOSORBIDE MONONITRATE [Concomitant]
     Route: 048

REACTIONS (3)
  - PETECHIAE [None]
  - PRURITUS [None]
  - SKIN DISCOLOURATION [None]
